FAERS Safety Report 9237993 (Version 2)
Quarter: 2013Q2

REPORT INFORMATION
  Report Type: Spontaneous
  Country: US (occurrence: None)
  Receive Date: 20130329
  Receipt Date: 20130501
  Transmission Date: 20140414
  Serious: Yes (Other)
  Sender: FDA-Public Use
  Company Number: GAM-066-13-US

PATIENT
  Age: 38 Year
  Sex: Female

DRUGS (1)
  1. IMMUNE GLOBULIN [Suspect]
     Indication: PRODUCT USED FOR UNKNOWN INDICATION
     Dosage: (2X 3 / WEEKS)
     Route: 042
     Dates: start: 20120405, end: 20120709

REACTIONS (7)
  - Dizziness [None]
  - Vomiting [None]
  - Babesiosis [None]
  - Pyrexia [None]
  - Erythema [None]
  - Erythema [None]
  - Suspected transmission of an infectious agent via product [None]
